FAERS Safety Report 8357344-0 (Version None)
Quarter: 2012Q2

REPORT INFORMATION
  Report Type: 
  Country: None (occurrence: None)
  Receive Date: 20120514
  Receipt Date: 20120512
  Transmission Date: 20120825
  Serious: Yes (Death)
  Sender: FDA-Public Use
  Company Number: CN-ROCHE-1068490

PATIENT
  Sex: Male

DRUGS (1)
  1. CELL CEPT [Suspect]
     Indication: RENAL TRANSPLANT
     Route: 048

REACTIONS (1)
  - DEATH [None]
